FAERS Safety Report 15967940 (Version 1)
Quarter: 2019Q1

REPORT INFORMATION
  Report Type: Spontaneous
  Country: US (occurrence: US)
  Receive Date: 20190215
  Receipt Date: 20190215
  Transmission Date: 20190418
  Serious: Yes (Hospitalization)
  Sender: FDA-Public Use
  Company Number: None

PATIENT
  Age: 52 Year
  Sex: Female
  Weight: 69 kg

DRUGS (1)
  1. DAPTOMYCIN. [Suspect]
     Active Substance: DAPTOMYCIN
     Indication: OSTEOMYELITIS
     Dosage: ?          OTHER FREQUENCY:EVERY OTHER DAY;?
     Route: 042
     Dates: start: 20190118, end: 20190204

REACTIONS (4)
  - Dysarthria [None]
  - Facial paralysis [None]
  - Eosinophilic pneumonia [None]
  - Confusional state [None]

NARRATIVE: CASE EVENT DATE: 20190205
